FAERS Safety Report 5114510-5 (Version None)
Quarter: 2006Q3

REPORT INFORMATION
  Report Type: 
  Country: None (occurrence: None)
  Receive Date: 20060926
  Receipt Date: 20060915
  Transmission Date: 20061208
  Serious: Yes (Other)
  Sender: FDA-Public Use
  Company Number: US-JNJFOC-20060805154

PATIENT
  Sex: Female
  Weight: 43.09 kg

DRUGS (4)
  1. TOPAMAX [Suspect]
     Indication: MIGRAINE PROPHYLAXIS
     Route: 048
  2. MAXZIDE [Concomitant]
  3. ZOMIG [Concomitant]
     Indication: HEADACHE
  4. VICODIN [Concomitant]

REACTIONS (3)
  - DEAFNESS [None]
  - HYPOACUSIS [None]
  - TINNITUS [None]
